FAERS Safety Report 8159231-X (Version None)
Quarter: 2012Q1

REPORT INFORMATION
  Report Type: 
  Country: None (occurrence: None)
  Receive Date: 20120223
  Receipt Date: 20120213
  Transmission Date: 20120608
  Serious: Yes (Other)
  Sender: FDA-Public Use
  Company Number: RU-TEVA-323388ISR

PATIENT
  Age: 39 Year
  Sex: Female

DRUGS (1)
  1. COPAXONE [Suspect]
     Route: 058

REACTIONS (5)
  - LOSS OF CONSCIOUSNESS [None]
  - CONVULSION [None]
  - DIARRHOEA [None]
  - ASTHMA [None]
  - FATIGUE [None]
